FAERS Safety Report 23594003 (Version 1)
Quarter: 2024Q1

REPORT INFORMATION
  Report Type: Report from Study
  Country: IT (occurrence: IT)
  Receive Date: 20240305
  Receipt Date: 20240305
  Transmission Date: 20240410
  Serious: Yes (Other)
  Sender: FDA-Public Use
  Company Number: IT-CELLTRION INC.-2022IT022485

PATIENT

DRUGS (28)
  1. HERCEPTIN [Suspect]
     Active Substance: TRASTUZUMAB
     Indication: Breast cancer metastatic
     Dosage: 6 MG/KG, Q3WEEKS
     Route: 042
     Dates: start: 20171116
  2. TRASTUZUMAB [Suspect]
     Active Substance: TRASTUZUMAB
     Indication: Breast cancer metastatic
     Dosage: 6 MILLIGRAM/KILOGRAM, Q3WEEKS; CUMULATIVE DOSE TO FIRST REACTION: 390 MG/KG
     Route: 042
     Dates: start: 20171116
  3. FEMARA [Suspect]
     Active Substance: LETROZOLE
     Indication: Breast cancer metastatic
     Dosage: 2.5 MILLIGRAM, QD
     Route: 048
     Dates: start: 20180801, end: 20180820
  4. FEMARA [Suspect]
     Active Substance: LETROZOLE
     Dosage: UNK
     Route: 065
     Dates: start: 20180820
  5. TAXOTERE [Suspect]
     Active Substance: DOCETAXEL
     Indication: Breast cancer metastatic
     Dosage: 80 MILLIGRAM/SQ. METER, 1/WEEK
     Route: 042
     Dates: start: 20171116, end: 20180220
  6. TAXOTERE [Suspect]
     Active Substance: DOCETAXEL
     Dosage: UNK
     Route: 065
     Dates: start: 20180220
  7. NOLVADEX [Suspect]
     Active Substance: TAMOXIFEN CITRATE
     Indication: Breast cancer metastatic
     Dosage: 20 MILLIGRAM, QD; CUMULATIVE DOSE TO FIRST REACTION: 21260 MG
     Route: 048
     Dates: start: 20180913
  8. LEUPROLIDE ACETATE [Suspect]
     Active Substance: ISOPROPYL ALCOHOL\LEUPROLIDE ACETATE
     Indication: Breast cancer metastatic
     Dosage: 3.75 MILLIGRAM, QD
     Route: 058
     Dates: start: 20180801, end: 20180912
  9. PERJETA [Suspect]
     Active Substance: PERTUZUMAB
     Indication: Breast cancer metastatic
     Dosage: 420 MILLIGRAM, Q3WEEKS; CUMULATIVE DOSE TO FIRST REACTION: 27300 MG
     Route: 042
     Dates: start: 20171116
  10. AROMASIN [Suspect]
     Active Substance: EXEMESTANE
     Indication: Breast cancer metastatic
     Dosage: 25 MILLIGRAM, QD
     Route: 048
     Dates: start: 20180820, end: 20180912
  11. AROMASIN [Suspect]
     Active Substance: EXEMESTANE
     Dosage: UNK
     Route: 065
     Dates: start: 20180912
  12. ENANTONE LP [Suspect]
     Active Substance: LEUPROLIDE ACETATE
     Indication: Breast cancer metastatic
     Dosage: 3.75 MG, QD
     Route: 058
     Dates: start: 20180801, end: 20180912
  13. KETOROLAC TROMETHAMINE [Concomitant]
     Active Substance: KETOROLAC TROMETHAMINE
     Indication: Abdominal pain
     Dosage: UNK
     Route: 030
     Dates: start: 20200820, end: 20200820
  14. AMOXICILLIN\CLAVULANIC ACID [Concomitant]
     Active Substance: AMOXICILLIN\CLAVULANIC ACID
     Indication: Paronychia
     Dosage: 1 DOSAGE FORM, EVERY 0.5 DAYS; CUMULATIVE DOSE TO FIRST REACTION: 6 DF
     Route: 048
     Dates: start: 20191007, end: 20191012
  15. AMOXICILLIN\CLAVULANIC ACID [Concomitant]
     Active Substance: AMOXICILLIN\CLAVULANIC ACID
     Dosage: 1 DOSAGE FORM, EVERY 1 DAY; CUMULATIVE DOSE TO FIRST REACTION: 6 DF
     Route: 048
     Dates: start: 20191007, end: 20191012
  16. METHYLPREDNISOLONE [Concomitant]
     Active Substance: METHYLPREDNISOLONE
     Indication: Lip oedema
     Dosage: 4 MILLIGRAM, QD
     Route: 048
     Dates: start: 20200413, end: 20200416
  17. METHYLPREDNISOLONE [Concomitant]
     Active Substance: METHYLPREDNISOLONE
     Indication: Musculoskeletal pain
     Dosage: 16 MILLIGRAM, QD; CUMULATIVE DOSE OF FIRST REACTION: 16 MG
     Route: 048
     Dates: start: 20180313, end: 20180313
  18. METHYLPREDNISOLONE [Concomitant]
     Active Substance: METHYLPREDNISOLONE
     Dosage: 16 MILLIGRAM, QD
     Route: 048
     Dates: start: 20180313
  19. CHLORPHENIRAMINE [Concomitant]
     Active Substance: CHLORPHENIRAMINE
     Indication: Product used for unknown indication
     Dosage: 10 MILLIGRAM
     Route: 042
     Dates: start: 20171123, end: 20180212
  20. DEXAMETHASONE [Concomitant]
     Active Substance: DEXAMETHASONE
     Indication: Product used for unknown indication
     Dosage: 20 MILLIGRAM; PRN (AS NEEDED
     Route: 042
     Dates: start: 20171123, end: 20180125
  21. DEXAMETHASONE [Concomitant]
     Active Substance: DEXAMETHASONE
     Dosage: 4 MILLIGRAM, QD; CUMULATIVE DOSE TO FIRST REACTION: 4 MG; ONGOING = CHECKED
     Route: 042
     Dates: start: 20180313, end: 20180313
  22. DEXAMETHASONE [Concomitant]
     Active Substance: DEXAMETHASONE
     Dosage: 8 MILLIGRAM; ONGOING = CHECKED
     Route: 042
     Dates: start: 20180202, end: 20180212
  23. BISOPROLOL FUMARATE [Concomitant]
     Active Substance: BISOPROLOL FUMARATE
     Indication: Tachycardia
     Dosage: 10 MILLIGRAM, QD; CUMULATIVE DOSE TO FIRST REACTION: 10100 MG
     Route: 048
     Dates: start: 20181105
  24. RANITIDINE [Concomitant]
     Active Substance: RANITIDINE
     Indication: Product used for unknown indication
     Dosage: 50 MILLIGRAM; PRN (AS NEEDED)
     Route: 042
     Dates: start: 20171123, end: 20180212
  25. ONDANSETRON [Concomitant]
     Active Substance: ONDANSETRON
     Indication: Product used for unknown indication
     Dosage: 8 MILLIGRAM; PRN (AS NEEDED)
     Route: 042
     Dates: start: 20171123, end: 20180212
  26. ZOLEDRONIC ACID [Concomitant]
     Active Substance: ZOLEDRONIC ACID
     Indication: Product used for unknown indication
     Dosage: 4 MILLIGRAM, EVERY 21 DAYS
     Route: 042
     Dates: start: 20180419, end: 20200406
  27. KETOROLAC [Concomitant]
     Active Substance: KETOROLAC TROMETHAMINE
     Indication: Abdominal pain
     Dosage: UNK UNK, QD; EVERY 1 DAY
     Route: 030
     Dates: start: 20200820, end: 20200820
  28. METHYLPREDNISOLONE [Concomitant]
     Active Substance: METHYLPREDNISOLONE
     Indication: Lip oedema
     Dosage: 4 MG, QD
     Dates: start: 20200413, end: 20200416

REACTIONS (7)
  - Neurotoxicity [Recovered/Resolved]
  - Neurotoxicity [Recovered/Resolved]
  - Visual field defect [Recovered/Resolved]
  - Headache [Recovered/Resolved]
  - Headache [Recovered/Resolved]
  - Asthenia [Recovered/Resolved]
  - Diarrhoea [Recovered/Resolved]

NARRATIVE: CASE EVENT DATE: 20171130
